FAERS Safety Report 18212251 (Version 1)
Quarter: 2020Q3

REPORT INFORMATION
  Report Type: Spontaneous
  Country: NL (occurrence: NL)
  Receive Date: 20200831
  Receipt Date: 20200831
  Transmission Date: 20201103
  Serious: Yes (Other)
  Sender: FDA-Public Use
  Company Number: NL-PFIZER INC-2020330697

PATIENT
  Age: 53 Year
  Sex: Female

DRUGS (7)
  1. PACLITAXEL. [Suspect]
     Active Substance: PACLITAXEL
     Indication: OVARIAN CANCER STAGE I
     Dosage: 75 MG/M2, CYCLIC (ON DAYS 1 AND 8)
     Route: 033
     Dates: start: 1996
  2. CARBOPLATIN. [Concomitant]
     Active Substance: CARBOPLATIN
     Indication: OVARIAN CANCER STAGE I
     Dosage: UNK, CYCLIC
     Route: 042
     Dates: start: 1996
  3. CYCLOPHOSPHAMIDE. [Concomitant]
     Active Substance: CYCLOPHOSPHAMIDE
     Indication: OVARIAN CANCER STAGE I
     Dosage: 750 MG/M2, CYCLIC ( ON DAY 1)
     Dates: start: 1996
  4. CLEMASTINE [Concomitant]
     Active Substance: CLEMASTINE
     Dosage: UNK
  5. DIAZEPAM. [Concomitant]
     Active Substance: DIAZEPAM
     Dosage: UNK
     Route: 033
  6. DEXAMETHASONE. [Concomitant]
     Active Substance: DEXAMETHASONE
     Dosage: UNK
  7. ONDANSETRON [Concomitant]
     Active Substance: ONDANSETRON
     Dosage: UNK

REACTIONS (3)
  - Visual field defect [Recovering/Resolving]
  - Blindness [Recovering/Resolving]
  - Vasospasm [Recovering/Resolving]

NARRATIVE: CASE EVENT DATE: 199705
